FAERS Safety Report 25959193 (Version 1)
Quarter: 2025Q4

REPORT INFORMATION
  Report Type: Other
  Country: CN (occurrence: CN)
  Receive Date: 20251025
  Receipt Date: 20251025
  Transmission Date: 20260118
  Serious: Yes (Hospitalization, Other)
  Sender: ANI
  Company Number: CN-ANIPHARMA-030975

PATIENT
  Age: 36 Year
  Sex: Female

DRUGS (3)
  1. METOCLOPRAMIDE [Suspect]
     Active Substance: METOCLOPRAMIDE
     Indication: Product used for unknown indication
     Dosage: APPROXIMATELY 350 MG, SINGLE ORAL INTAKE
     Route: 048
  2. ADRENOLIZONE [Concomitant]
     Indication: Product used for unknown indication
  3. COENZYME Q10 [Concomitant]
     Active Substance: DIETARY SUPPLEMENT\UBIDECARENONE
     Indication: Product used for unknown indication

REACTIONS (2)
  - Toxic encephalopathy [Recovering/Resolving]
  - Cytotoxic oedema [Recovering/Resolving]
